FAERS Safety Report 7085421-3 (Version None)
Quarter: 2010Q4

REPORT INFORMATION
  Report Type: 
  Country: None (occurrence: None)
  Receive Date: 20101105
  Receipt Date: 20101102
  Transmission Date: 20110411
  Serious: Yes (Congenital Anomaly)
  Sender: FDA-Public Use
  Company Number: GB-PFIZER INC-2010131448

PATIENT

DRUGS (13)
  1. METHYLPREDNISOLONE [Suspect]
     Dosage: UNK MG, 1X/DAY
     Route: 064
  2. HYDROXYCHLOROQUINE [Suspect]
     Indication: SYSTEMIC LUPUS ERYTHEMATOSUS
     Dosage: 200 MG, 1X/DAY
     Route: 064
     Dates: start: 20090318
  3. ALENDRONIC ACID [Suspect]
     Indication: SYSTEMIC LUPUS ERYTHEMATOSUS
     Dosage: 70 MG, 1X/DAY
     Route: 064
  4. AZATHIOPRINE [Suspect]
     Indication: SYSTEMIC LUPUS ERYTHEMATOSUS
     Dosage: 50 MG, 1X/DAY
     Route: 064
     Dates: start: 20090309
  5. CHLORHEXIDINE [Suspect]
     Dosage: UNK
     Route: 064
     Dates: start: 20090309, end: 20090420
  6. LACTULOSE [Suspect]
     Dosage: UNK
     Route: 064
     Dates: start: 20090309, end: 20090420
  7. MUPIROCIN [Suspect]
     Dosage: UNK
     Route: 064
     Dates: start: 20090309, end: 20090420
  8. PARACETAMOL [Suspect]
     Dosage: UNK
     Route: 064
     Dates: start: 20090309, end: 20090420
  9. PREDNISOLONE [Suspect]
     Dosage: UNK
     Route: 064
     Dates: start: 20090309
  10. SENNA [Suspect]
     Dosage: UNK
     Route: 064
     Dates: start: 20090309, end: 20090420
  11. SIMPLE LINCTUS [Suspect]
     Dosage: UNK
     Route: 064
     Dates: start: 20090309, end: 20090420
  12. ACETYLSALICYLIC ACID [Concomitant]
     Dosage: UNK
     Dates: start: 20090101
  13. FOLIC ACID [Concomitant]
     Dosage: UNK

REACTIONS (5)
  - ABORTION INDUCED [None]
  - CLEFT LIP AND PALATE [None]
  - DRUG EXPOSURE DURING PREGNANCY [None]
  - MATERNAL DRUGS AFFECTING FOETUS [None]
  - TERATOGENICITY [None]
